FAERS Safety Report 12155500 (Version 2)
Quarter: 2016Q1

REPORT INFORMATION
  Report Type: Report from Study
  Country: US (occurrence: US)
  Receive Date: 20160307
  Receipt Date: 20160323
  Transmission Date: 20160526
  Serious: Yes (Death)
  Sender: FDA-Public Use
  Company Number: US-HLSUS-2016-US-000089

PATIENT
  Age: 77 Year
  Sex: Male
  Weight: 104.33 kg

DRUGS (1)
  1. CLOZAPINE. [Suspect]
     Active Substance: CLOZAPINE
     Indication: DEMENTIA WITH LEWY BODIES
     Dosage: 25 MG DAILY
     Route: 048
     Dates: start: 20131017

REACTIONS (1)
  - Death [Fatal]

NARRATIVE: CASE EVENT DATE: 20160215
